FAERS Safety Report 5594263-7 (Version None)
Quarter: 2007Q4

REPORT INFORMATION
  Report Type: 
  Country: None (occurrence: None)
  Receive Date: 20071218
  Receipt Date: 20070102
  Transmission Date: 20080405
  Serious: Yes (Hospitalization, Other)
  Sender: FDA-Public Use
  Company Number: 2007001932

PATIENT
  Age: 46 Year
  Sex: Female
  Weight: 59 kg

DRUGS (3)
  1. BEXTRA [Suspect]
     Indication: ARTHRALGIA
     Dosage: 10 MG (10 MG,1 IN 1 D),ORAL
     Route: 048
     Dates: start: 20020101
  2. BEXTRA [Suspect]
     Indication: BONE PAIN
     Dosage: 10 MG (10 MG,1 IN 1 D),ORAL
     Route: 048
     Dates: start: 20020101
  3. BEXTRA [Suspect]
     Indication: SURGERY
     Dosage: 10 MG (10 MG,1 IN 1 D),ORAL
     Route: 048
     Dates: start: 20020101

REACTIONS (1)
  - PULMONARY EMBOLISM [None]
